FAERS Safety Report 24707784 (Version 1)
Quarter: 2024Q4

REPORT INFORMATION
  Report Type: Spontaneous
  Country: US (occurrence: US)
  Receive Date: 20241206
  Receipt Date: 20241206
  Transmission Date: 20250115
  Serious: No
  Sender: NOVO NORDISK
  Company Number: None

PATIENT

DRUGS (1)
  1. NOVOLIN 70/30 [Suspect]
     Active Substance: INSULIN HUMAN
     Indication: Product used for unknown indication
     Dosage: 80 UNITS
     Route: 058

REACTIONS (6)
  - Asthenia [Unknown]
  - Fatigue [Unknown]
  - Therapeutic response changed [Unknown]
  - Blood glucose decreased [Unknown]
  - Device use confusion [Unknown]
  - Wrong technique in device usage process [Unknown]
